FAERS Safety Report 20910964 (Version 1)
Quarter: 2022Q2

REPORT INFORMATION
  Report Type: Report from Study
  Country: CN (occurrence: CN)
  Receive Date: 20220603
  Receipt Date: 20220603
  Transmission Date: 20220720
  Serious: Yes (Hospitalization)
  Sender: FDA-Public Use
  Company Number: CN-BRISTOL-MYERS SQUIBB COMPANY-BMS-2018-035538

PATIENT
  Age: 69 Year
  Sex: Female
  Weight: 56 kg

DRUGS (4)
  1. IPILIMUMAB [Suspect]
     Active Substance: IPILIMUMAB
     Indication: Small cell lung cancer
     Dosage: 1 DF = 168 UNITS NOT SPECIFIED
     Route: 042
     Dates: start: 20180117
  2. CALAMINE [Concomitant]
     Active Substance: CALAMINE\FERRIC OXIDE RED\ZINC OXIDE
     Indication: Product used for unknown indication
     Dosage: UNK
     Route: 065
     Dates: start: 20180202
  3. LORATADINE [Concomitant]
     Active Substance: LORATADINE
     Indication: Product used for unknown indication
     Dosage: UNK
     Route: 065
     Dates: start: 20180202
  4. ZOLPIDEM TARTRATE [Concomitant]
     Active Substance: ZOLPIDEM TARTRATE
     Indication: Product used for unknown indication
     Dosage: UNK
     Route: 065
     Dates: start: 20180223

REACTIONS (1)
  - Hyponatraemia [Recovered/Resolved]

NARRATIVE: CASE EVENT DATE: 20180408
